FAERS Safety Report 12333819 (Version 3)
Quarter: 2018Q2

REPORT INFORMATION
  Report Type: Report from Study
  Country: JP (occurrence: JP)
  Receive Date: 20160504
  Receipt Date: 20180406
  Transmission Date: 20180711
  Serious: Yes (Other)
  Sender: FDA-Public Use
  Company Number: JP-ROCHE-1747910

PATIENT

DRUGS (5)
  1. TRASTUZUMAB. [Suspect]
     Active Substance: TRASTUZUMAB
     Route: 042
  2. PERTUZUMAB. [Suspect]
     Active Substance: PERTUZUMAB
     Indication: HER-2 POSITIVE BREAST CANCER
     Route: 065
  3. ERIBULIN [Suspect]
     Active Substance: ERIBULIN
     Indication: HER-2 POSITIVE BREAST CANCER
     Route: 065
  4. TRASTUZUMAB. [Suspect]
     Active Substance: TRASTUZUMAB
     Indication: HER-2 POSITIVE BREAST CANCER
     Route: 042
  5. PERTUZUMAB. [Suspect]
     Active Substance: PERTUZUMAB
     Route: 065

REACTIONS (9)
  - Hypertension [Unknown]
  - Leukopenia [Unknown]
  - Neuropathy peripheral [Unknown]
  - Electrocardiogram QT prolonged [Unknown]
  - Febrile neutropenia [Unknown]
  - Lymphopenia [Unknown]
  - Neutropenia [Unknown]
  - Hypokalaemia [Unknown]
  - Hyperkalaemia [Unknown]
